FAERS Safety Report 9386176 (Version 1)
Quarter: 2013Q3

REPORT INFORMATION
  Report Type: Spontaneous
  Country: US (occurrence: US)
  Receive Date: 20130707
  Receipt Date: 20130707
  Transmission Date: 20140515
  Serious: Yes (Hospitalization)
  Sender: FDA-Public Use
  Company Number: US-B.I. PHARMACEUTICALS,INC./RIDGEFIELD-2013-BI-19240BP

PATIENT
  Age: 54 Year
  Sex: Female

DRUGS (3)
  1. PRADAXA [Suspect]
     Indication: CARDIOVASCULAR EVENT PROPHYLAXIS
     Dosage: 300 MG
     Route: 048
     Dates: start: 2011, end: 20130621
  2. PRADAXA [Suspect]
     Indication: ATRIAL FIBRILLATION
  3. SOTALOL [Concomitant]
     Indication: ATRIAL FIBRILLATION
     Dosage: 160 MG
     Route: 048

REACTIONS (2)
  - Atrial fibrillation [Recovered/Resolved]
  - Gastrointestinal tract irritation [Recovered/Resolved]
